FAERS Safety Report 9061299 (Version 1)
Quarter: 2013Q1

REPORT INFORMATION
  Report Type: Spontaneous
  Country: US (occurrence: US)
  Receive Date: 20130204
  Receipt Date: 20130204
  Transmission Date: 20140127
  Serious: Yes (Other)
  Sender: FDA-Public Use
  Company Number: US-BAYER-2013-010739

PATIENT
  Age: 0 None
  Sex: Male
  Weight: 6 kg

DRUGS (2)
  1. PHILLIPS^ MILK OF MAGNESIA LIQUID ORIGINAL [Suspect]
     Indication: CONSTIPATION
     Route: 064
  2. PHILLIPS^ MILK OF MAGNESIA LIQUID ORIGINAL [Suspect]
     Indication: CONSTIPATION
     Dosage: UNK UNK, QID
     Route: 048
     Dates: start: 1969, end: 1970

REACTIONS (3)
  - Talipes [None]
  - Off label use [Recovered/Resolved]
  - Foetal exposure during pregnancy [Recovered/Resolved]
